FAERS Safety Report 17316532 (Version 2)
Quarter: 2021Q1

REPORT INFORMATION
  Report Type: Spontaneous
  Country: CA (occurrence: CA)
  Receive Date: 20200124
  Receipt Date: 20210118
  Transmission Date: 20210419
  Serious: Yes (Life-Threatening, Other)
  Sender: FDA-Public Use
  Company Number: CA-JNJFOC-20200123412

PATIENT
  Age: 27 Year
  Sex: Male
  Weight: 70.37 kg

DRUGS (5)
  1. VALPROIC ACID. [Concomitant]
     Active Substance: VALPROIC ACID
  2. INVEGA SUSTENNA [Suspect]
     Active Substance: PALIPERIDONE PALMITATE
  3. OLANZAPINE. [Concomitant]
     Active Substance: OLANZAPINE
  4. INVEGA SUSTENNA [Suspect]
     Active Substance: PALIPERIDONE PALMITATE
     Indication: PRODUCT USED FOR UNKNOWN INDICATION
     Dosage: UNK
     Route: 030
  5. INVEGA SUSTENNA [Suspect]
     Active Substance: PALIPERIDONE PALMITATE

REACTIONS (13)
  - Acute kidney injury [Recovered/Resolved with Sequelae]
  - Burning sensation [Recovered/Resolved with Sequelae]
  - Vomiting [Recovered/Resolved with Sequelae]
  - Suicidal ideation [Not Recovered/Not Resolved]
  - Life expectancy shortened [Not Recovered/Not Resolved]
  - Internal injury [Not Recovered/Not Resolved]
  - Neurotoxicity [Recovered/Resolved with Sequelae]
  - Bradyphrenia [Recovered/Resolved with Sequelae]
  - Hyperactive pharyngeal reflex [Recovered/Resolved with Sequelae]
  - Depersonalisation/derealisation disorder [Not Recovered/Not Resolved]
  - Pain [Recovered/Resolved with Sequelae]
  - Impaired quality of life [Not Recovered/Not Resolved]
  - Schizophrenia [Not Recovered/Not Resolved]
